FAERS Safety Report 25454455 (Version 1)
Quarter: 2025Q2

REPORT INFORMATION
  Report Type: Spontaneous
  Country: IT (occurrence: IT)
  Receive Date: 20250619
  Receipt Date: 20250619
  Transmission Date: 20250716
  Serious: Yes (Life-Threatening, Hospitalization, Other)
  Sender: AUROBINDO
  Company Number: IT-MINISAL02-1042657

PATIENT
  Age: 13 Year
  Sex: Female
  Weight: 55 kg

DRUGS (2)
  1. SERTRALINE [Suspect]
     Active Substance: SERTRALINE HYDROCHLORIDE
     Indication: Product used for unknown indication
     Dosage: 200 MILLIGRAM (4 TABLETS OF 50 MG (TOTAL 200 MG))
     Route: 048
     Dates: start: 20250525, end: 20250525
  2. NIAPRAZINE [Suspect]
     Active Substance: NIAPRAZINE
     Indication: Product used for unknown indication
     Dosage: 15 MILLILITER, ONCE A DAY (THE PATIENT TOOK NIAPRAZINE 15 MG/ 5ML ONE AND A HALF DOSERS (15 ML))
     Route: 048
     Dates: start: 20250525, end: 20250525

REACTIONS (5)
  - Drug abuse [Recovered/Resolved]
  - Syncope [Recovered/Resolved]
  - Somnolence [Recovered/Resolved]
  - Confusional state [Recovered/Resolved]
  - Vomiting [Recovered/Resolved]

NARRATIVE: CASE EVENT DATE: 20250525
